FAERS Safety Report 8299918 (Version 3)
Quarter: 2012Q4

REPORT INFORMATION
  Report Type: 
  Country: JP (occurrence: JP)
  Receive Date: 20111219
  Receipt Date: 20121012
  Transmission Date: 20130627
  Serious: Yes (Other)
  Sender: FDA-Public Use
  Company Number: JP-AMGEN-JPNSP2011067012

PATIENT
  Age: 68 Year
  Sex: Female
  Weight: 71 kg

DRUGS (13)
  1. ROMIPLOSTIM - KHK [Suspect]
     Indication: IDIOPATHIC THROMBOCYTOPENIC PURPURA
     Dosage: 1 mg/kg, qwk
     Route: 058
     Dates: start: 20110825, end: 20110825
  2. ROMIPLOSTIM - KHK [Suspect]
     Dosage: 1 mg/kg, qwk
     Route: 058
     Dates: start: 20110901, end: 20111104
  3. ROMIPLOSTIM - KHK [Suspect]
     Dosage: 2 mg/kg, qwk
     Route: 058
     Dates: start: 20111110, end: 20111124
  4. DEPAKENE [Concomitant]
     Indication: EPILEPSY
     Dosage: 200 mg, UNK
     Route: 048
  5. BAKTAR [Concomitant]
     Indication: INFECTION PROPHYLAXIS
     Dosage: UNK
     Route: 048
  6. PARIET [Concomitant]
     Indication: PROPHYLAXIS
     Dosage: 10 mg, UNK
     Route: 048
  7. ECARD [Concomitant]
     Indication: HYPERTENSION
     Dosage: UNK
     Route: 048
  8. AMLODIPINE [Concomitant]
     Indication: HYPERTENSION
     Dosage: 2.5 mg, UNK
     Route: 048
  9. SAWADOL [Concomitant]
     Indication: HYPERTENSION
     Dosage: 20 mg, UNK
     Route: 048
  10. TOWAMIN [Concomitant]
     Indication: HYPERTENSION
     Dosage: 50 mg, UNK
     Route: 048
  11. MYSLEE [Concomitant]
     Indication: INSOMNIA
     Dosage: 5 mg, UNK
     Route: 048
  12. NEUFAN [Concomitant]
     Indication: HYPERURICAEMIA
     Dosage: 100 mg, UNK
     Route: 048
  13. NEORAL [Concomitant]
     Indication: IDIOPATHIC THROMBOCYTOPENIC PURPURA
     Dosage: UNK
     Route: 048
     Dates: start: 20090811, end: 20110823

REACTIONS (2)
  - Epilepsy [Recovered/Resolved]
  - Cerebral infarction [Unknown]
